FAERS Safety Report 6889904-8 (Version None)
Quarter: 2010Q3

REPORT INFORMATION
  Report Type: 
  Country: None (occurrence: None)
  Receive Date: 20100730
  Receipt Date: 20080611
  Transmission Date: 20110219
  Serious: No
  Sender: FDA-Public Use
  Company Number: US-PFIZER INC-2008050205

PATIENT
  Sex: Female
  Weight: 109.09 kg

DRUGS (9)
  1. LIPITOR [Suspect]
  2. LASIX [Concomitant]
  3. BENICAR [Concomitant]
  4. POTASSIUM [Concomitant]
  5. CELEBREX [Concomitant]
  6. VITAMIN E [Concomitant]
  7. ACETYLSALICYLIC ACID SRT [Concomitant]
  8. ANALGESICS [Concomitant]
  9. DRUG, UNSPECIFIED [Concomitant]

REACTIONS (1)
  - BLOOD PRESSURE INCREASED [None]
